FAERS Safety Report 13355198 (Version 1)
Quarter: 2017Q1

REPORT INFORMATION
  Report Type: Spontaneous
  Country: US (occurrence: US)
  Receive Date: 20170321
  Receipt Date: 20170321
  Transmission Date: 20170429
  Serious: Yes (Other)
  Sender: FDA-Public Use
  Company Number: None

PATIENT
  Age: 57 Year
  Sex: Female
  Weight: 119.75 kg

DRUGS (1)
  1. GABAPENTIN 800MG [Suspect]
     Active Substance: GABAPENTIN
     Indication: NEUROPATHY PERIPHERAL
     Dates: start: 20110501, end: 20110509

REACTIONS (2)
  - Urticaria [None]
  - Dyspnoea [None]

NARRATIVE: CASE EVENT DATE: 20110509
